FAERS Safety Report 23140526 (Version 1)
Quarter: 2023Q4

REPORT INFORMATION
  Report Type: Other
  Country: JP (occurrence: None)
  Receive Date: 20231102
  Receipt Date: 20231102
  Transmission Date: 20240110
  Serious: Yes (Other)
  Sender: FDA-Public Use
  Company Number: JP-ROCHE-3446418

PATIENT
  Sex: Female

DRUGS (3)
  1. BEVACIZUMAB [Suspect]
     Active Substance: BEVACIZUMAB
     Indication: Cervix carcinoma
     Route: 065
  2. PACLITAXEL [Suspect]
     Active Substance: PACLITAXEL
     Indication: Cervix carcinoma
     Route: 065
  3. IRINOTECAN [Suspect]
     Active Substance: IRINOTECAN
     Indication: Cervix carcinoma
     Route: 065

REACTIONS (5)
  - Bladder perforation [Unknown]
  - Urinary tract obstruction [Unknown]
  - Urinary fistula [Unknown]
  - Gastrointestinal haemorrhage [Unknown]
  - Gastrointestinal fistula [Unknown]
